FAERS Safety Report 21486950 (Version 2)
Quarter: 2022Q4

REPORT INFORMATION
  Report Type: Spontaneous
  Country: US (occurrence: US)
  Receive Date: 20221020
  Receipt Date: 20221128
  Transmission Date: 20230113
  Serious: Yes (Life-Threatening, Hospitalization)
  Sender: FDA-Public Use
  Company Number: US-JNJFOC-20221019327

PATIENT
  Age: 2 Year
  Sex: Female
  Weight: 11 kg

DRUGS (1)
  1. CHILDRENS MOTRIN [Suspect]
     Active Substance: IBUPROFEN
     Indication: Product used for unknown indication
     Dosage: BROKE THE TABLET ALONG THE SCORING AND TOOK THE HALF-TABLET
     Route: 048
     Dates: start: 202111

REACTIONS (21)
  - Foreign body aspiration [Unknown]
  - Product administered to patient of inappropriate age [Unknown]
  - Cardio-respiratory arrest [Unknown]
  - Choking [Unknown]
  - Pneumonitis aspiration [Unknown]
  - Acute respiratory failure [Unknown]
  - Hypoxic-ischaemic encephalopathy [Unknown]
  - Metapneumovirus pneumonia [Unknown]
  - Hypernatraemia [Unknown]
  - Sepsis [Unknown]
  - Blood potassium decreased [Unknown]
  - Blood chloride increased [Unknown]
  - Blood glucose increased [Unknown]
  - Blood calcium decreased [Unknown]
  - Blood alkaline phosphatase increased [Unknown]
  - Blood albumin decreased [Unknown]
  - Protein total decreased [Unknown]
  - Globulins decreased [Unknown]
  - Blood creatinine decreased [Unknown]
  - Aspartate aminotransferase increased [Unknown]
  - Alanine aminotransferase increased [Unknown]

NARRATIVE: CASE EVENT DATE: 20211101
